FAERS Safety Report 14671465 (Version 1)
Quarter: 2018Q1

REPORT INFORMATION
  Report Type: Spontaneous
  Country: US (occurrence: US)
  Receive Date: 20180323
  Receipt Date: 20180323
  Transmission Date: 20180509
  Serious: No
  Sender: FDA-Public Use
  Company Number: US-CELGENEUS-USA-20180307148

PATIENT
  Age: 42 Year
  Sex: Female

DRUGS (2)
  1. APREMILAST [Suspect]
     Active Substance: APREMILAST
     Indication: OFF LABEL USE
  2. APREMILAST [Suspect]
     Active Substance: APREMILAST
     Indication: SKIN DISORDER
     Dosage: 30 MILLIGRAM
     Route: 048

REACTIONS (1)
  - Insomnia [Unknown]
